FAERS Safety Report 23762054 (Version 1)
Quarter: 2024Q2

REPORT INFORMATION
  Report Type: Spontaneous
  Country: BR (occurrence: None)
  Receive Date: 20240419
  Receipt Date: 20240419
  Transmission Date: 20240715
  Serious: Yes (Death, Other)
  Sender: FDA-Public Use
  Company Number: BR-ROCHE-3543870

PATIENT
  Age: 68 Year

DRUGS (2)
  1. ATEZOLIZUMAB [Suspect]
     Active Substance: ATEZOLIZUMAB
     Indication: Hepatocellular carcinoma
     Route: 065
     Dates: start: 202109
  2. AVASTIN [Suspect]
     Active Substance: BEVACIZUMAB
     Indication: Hepatocellular carcinoma
     Route: 065
     Dates: start: 202109

REACTIONS (5)
  - Bone disorder [Unknown]
  - Lymphadenopathy [Unknown]
  - Hepatic function abnormal [Fatal]
  - Hepatic cirrhosis [Unknown]
  - Hepatitis [Unknown]

NARRATIVE: CASE EVENT DATE: 20230101
